FAERS Safety Report 8831215 (Version 1)
Quarter: 2012Q4

REPORT INFORMATION
  Report Type: Spontaneous
  Country: US (occurrence: None)
  Receive Date: 20121005
  Receipt Date: 20121005
  Transmission Date: 20130627
  Serious: Yes (Other)
  Sender: FDA-Public Use
  Company Number: None

PATIENT
  Age: 2 Month
  Sex: Male
  Weight: 4.85 kg

DRUGS (2)
  1. PLEGISOL [Suspect]
     Indication: CARDIAC OPERATION
     Dates: start: 20121003, end: 20121003
  2. PLEGISOL [Suspect]
     Indication: TETRALOGY OF FALLOT REPAIR
     Dates: start: 20121003, end: 20121003

REACTIONS (1)
  - Drug ineffective [None]
